FAERS Safety Report 5494171-6 (Version None)
Quarter: 2007Q4

REPORT INFORMATION
  Report Type: 
  Country: None (occurrence: None)
  Receive Date: 20071023
  Receipt Date: 20071023
  Transmission Date: 20080405
  Serious: Yes (Life-Threatening, Hospitalization, Disabling)
  Sender: FDA-Public Use
  Company Number: None

PATIENT
  Age: 88 Year
  Sex: Male
  Weight: 52.1637 kg

DRUGS (1)
  1. TRANSDERM SCOP [Suspect]
     Indication: NAUSEA
     Dates: start: 20071012, end: 20071014

REACTIONS (9)
  - CONFUSIONAL STATE [None]
  - DYSPNOEA [None]
  - FEELING JITTERY [None]
  - HALLUCINATION [None]
  - NERVOUSNESS [None]
  - OVERDOSE [None]
  - POOR QUALITY SLEEP [None]
  - SLEEP APNOEA SYNDROME [None]
  - URINARY RETENTION [None]
